FAERS Safety Report 9478587 (Version 1)
Quarter: 2013Q3

REPORT INFORMATION
  Report Type: Spontaneous
  Country: CZ (occurrence: CZ)
  Receive Date: 20130827
  Receipt Date: 20130827
  Transmission Date: 20140515
  Serious: Yes (Hospitalization, Other)
  Sender: FDA-Public Use
  Company Number: CZ-PFIZER INC-2013243686

PATIENT
  Age: 77 Year
  Sex: Female

DRUGS (15)
  1. NEURONTIN [Suspect]
     Dosage: 300 MG, 1-0-1 TBL
  2. MONO MACK [Suspect]
     Dosage: 100 MG, 1-0-0 TBL
  3. PREDNISONE [Suspect]
     Dosage: 20 MG, 1-1-0 TBL
  4. ENELBIN [Suspect]
     Dosage: 100 MG, 1-0-1 TBL
  5. ANOPYRIN [Suspect]
     Dosage: 100 MG, 0-1-0 TBL
  6. NEUROL /CZE/ [Suspect]
     Dosage: 1 MG, 1-1-1 TB
  7. APO-MOCLOBEMIDE [Suspect]
     Dosage: 150 MG, 1-0-1 TBL
  8. CITALEC [Suspect]
     Dosage: 20 MG, 1-1-0 TBL
  9. HELICIDINE [Suspect]
     Dosage: 20 MG, 1-0-0 TBL
  10. VIGANTOL ^BAYER^ [Suspect]
     Dosage: 8 DROPS PER DAY
  11. ZALDIAR [Suspect]
     Dosage: 1-1-1TBL
  12. ZOCOR [Suspect]
     Dosage: 20 MG, 0-0-1 TBL
  13. GLUCOPHAGE [Suspect]
     Dosage: 1000 MG, 1-0-1 TBL
  14. LAMICTAL [Suspect]
     Dosage: 100 MG, 1-0-0 TBL
  15. FRAXIPARINE [Suspect]
     Dosage: 0.3 ML, 1-0-0 AMP
     Route: 058

REACTIONS (2)
  - Drug prescribing error [Unknown]
  - Delirium [Recovered/Resolved]
